FAERS Safety Report 5825283-2 (Version None)
Quarter: 2008Q3

REPORT INFORMATION
  Report Type: 
  Country: None (occurrence: None)
  Receive Date: 20080729
  Receipt Date: 20080723
  Transmission Date: 20090109
  Serious: Yes (Death, Hospitalization, Other)
  Sender: FDA-Public Use
  Company Number: GB-ELI_LILLY_AND_COMPANY-GB200702002589

PATIENT
  Age: 45 Year
  Sex: Male

DRUGS (6)
  1. ZYPREXA [Suspect]
     Indication: SCHIZOPHRENIA
     Dosage: 20 MG, DAILY (1/D)
  2. AMISULPRIDE [Concomitant]
     Dosage: 200 MG, DAILY (1/D)
     Route: 048
  3. AMLODIPINE [Concomitant]
     Dosage: 5 MG, DAILY (1/D)
     Route: 048
  4. CLOZAPINE [Concomitant]
     Dosage: 125 MG, DAILY (1/D)
     Route: 048
  5. DIAZEPAM [Concomitant]
     Dosage: 5 MG, UNK
     Route: 048
  6. ZUCLOPENTHIXOL [Concomitant]

REACTIONS (7)
  - CARDIAC ARREST [None]
  - FALL [None]
  - GASTROINTESTINAL SOUNDS ABNORMAL [None]
  - INJURY [None]
  - NEUROLEPTIC MALIGNANT SYNDROME [None]
  - RESPIRATORY DISORDER [None]
  - URINARY TRACT INFECTION [None]
